FAERS Safety Report 8222603-9 (Version None)
Quarter: 2012Q1

REPORT INFORMATION
  Report Type: 
  Country: None (occurrence: None)
  Receive Date: 20120320
  Receipt Date: 20120319
  Transmission Date: 20120608
  Serious: Yes (Hospitalization)
  Sender: FDA-Public Use
  Company Number: IE-AMGEN-IRLSP2011051574

PATIENT
  Age: 64 Year
  Sex: Female

DRUGS (8)
  1. DEXAMETHASONE [Concomitant]
  2. CYCLOPHOSPHAMIDE [Concomitant]
     Indication: BREAST CANCER
  3. RAMILO [Concomitant]
  4. AMLID [Concomitant]
  5. ADRIAMYCIN PFS [Concomitant]
     Indication: BREAST CANCER
  6. KYTRIL [Concomitant]
  7. EMEND [Concomitant]
  8. NEULASTA [Suspect]
     Indication: CHEMOTHERAPY
     Dosage: 6 MG, 2 TIMES/WK
     Route: 058
     Dates: start: 20110823, end: 20110915

REACTIONS (1)
  - FEBRILE NEUTROPENIA [None]
